FAERS Safety Report 23998205 (Version 1)
Quarter: 2024Q2

REPORT INFORMATION
  Report Type: Report from Study
  Country: KR (occurrence: KR)
  Receive Date: 20240621
  Receipt Date: 20240621
  Transmission Date: 20240716
  Serious: Yes (Hospitalization, Other)
  Sender: FDA-Public Use
  Company Number: KR-TAKEDA-2024TUS060251

PATIENT
  Age: 39 Year
  Sex: Female
  Weight: 43.2 kg

DRUGS (14)
  1. VEDOLIZUMAB [Suspect]
     Active Substance: VEDOLIZUMAB
     Indication: Colitis ulcerative
     Dosage: 300 MILLIGRAM
     Route: 042
     Dates: start: 20220816
  2. Boryung acetylcysteine [Concomitant]
     Indication: Influenza
     Dosage: 0.5 MILLIGRAM
     Route: 030
     Dates: start: 20220930
  3. Duoclin [Concomitant]
     Indication: Adverse event
     Dosage: UNK
     Route: 061
     Dates: start: 20221125
  4. ACETPHEN PREMIX [Concomitant]
     Indication: Adverse event
     Dosage: 1000 MILLIGRAM
     Route: 042
     Dates: start: 20230725
  5. NEXIUM I.V. [Concomitant]
     Active Substance: ESOMEPRAZOLE SODIUM
     Indication: Adverse event
     Dosage: 80 MILLIGRAM
     Route: 042
     Dates: start: 20230725
  6. METOCLOPRAMIDE HYDROCHLORIDE [Concomitant]
     Active Substance: METOCLOPRAMIDE HYDROCHLORIDE
     Indication: Adverse event
     Dosage: 10 MILLIGRAM, QD
     Route: 042
     Dates: start: 20230725
  7. MIDAZOLAM [Concomitant]
     Active Substance: MIDAZOLAM
     Dosage: 3 MILLIGRAM
     Route: 042
     Dates: start: 20230725
  8. PROPOFOL [Concomitant]
     Active Substance: PROPOFOL
     Indication: Sedative therapy
     Dosage: 30 MILLIGRAM
     Route: 042
     Dates: start: 20230725
  9. BROPIUM [Concomitant]
     Indication: Premedication
     Dosage: 5 MILLIGRAM
     Route: 042
     Dates: start: 20230725
  10. CEFTRIAXONE [Concomitant]
     Active Substance: CEFTRIAXONE\CEFTRIAXONE SODIUM
     Indication: Adverse event
     Dosage: 2000 MILLIGRAM, QD
     Route: 042
     Dates: start: 20230725
  11. AZATHIOPRINE [Concomitant]
     Active Substance: AZATHIOPRINE
     Indication: Adverse event
     Dosage: UNK UNK, QD
     Route: 048
     Dates: start: 20220621
  12. AZATHIOPRINE [Concomitant]
     Active Substance: AZATHIOPRINE
     Dosage: UNK, QD
     Route: 048
     Dates: start: 20220719
  13. MESALAMINE [Concomitant]
     Active Substance: MESALAMINE
     Dosage: UNK
     Route: 048
     Dates: start: 20181208
  14. PENTASA [Concomitant]
     Active Substance: MESALAMINE
     Dosage: 1000 MILLIGRAM, QD
     Route: 054
     Dates: start: 20200717, end: 20220929

REACTIONS (1)
  - Haematemesis [Recovered/Resolved]

NARRATIVE: CASE EVENT DATE: 20230725
